FAERS Safety Report 5394908-0 (Version None)
Quarter: 2007Q3

REPORT INFORMATION
  Report Type: 
  Country: None (occurrence: None)
  Receive Date: 20070720
  Receipt Date: 20070717
  Transmission Date: 20080115
  Serious: Yes (Hospitalization)
  Sender: FDA-Public Use
  Company Number: 2007AL002816

PATIENT
  Age: 61 Year
  Sex: Female

DRUGS (4)
  1. METFORMIN HCL [Suspect]
     Indication: DRUG USE FOR UNKNOWN INDICATION
     Dosage: 2 MG; QD
  2. ROSIGLITAZONE [Concomitant]
  3. GLIMEPIRIDE [Concomitant]
  4. BENDROFLUAZIDE [Concomitant]

REACTIONS (5)
  - DEPRESSED LEVEL OF CONSCIOUSNESS [None]
  - GLASGOW COMA SCALE ABNORMAL [None]
  - LACTIC ACIDOSIS [None]
  - NAUSEA [None]
  - VOMITING [None]
